FAERS Safety Report 15240520 (Version 1)
Quarter: 2018Q3

REPORT INFORMATION
  Report Type: Spontaneous
  Country: US (occurrence: US)
  Receive Date: 20180804
  Receipt Date: 20180804
  Transmission Date: 20181010
  Serious: No
  Sender: FDA-Public Use
  Company Number: US-ASTRAZENECA-2018SE96949

PATIENT
  Age: 23439 Day
  Sex: Male
  Weight: 110.9 kg

DRUGS (11)
  1. AMLODIPINE [Concomitant]
     Active Substance: AMLODIPINE BESYLATE
     Indication: HYPERTENSION
     Route: 048
  2. LEVOTHYROXINE. [Concomitant]
     Active Substance: LEVOTHYROXINE
     Indication: THYROID DISORDER
     Route: 048
  3. ARIPIPRAZOLE. [Concomitant]
     Active Substance: ARIPIPRAZOLE
     Indication: DEPRESSION
     Route: 048
  4. MELOXICAM. [Concomitant]
     Active Substance: MELOXICAM
     Indication: TYPE 2 DIABETES MELLITUS
     Route: 048
  5. AMLODIPINE [Concomitant]
     Active Substance: AMLODIPINE BESYLATE
     Indication: BLOOD PRESSURE ABNORMAL
     Route: 048
  6. MELOXICAM. [Concomitant]
     Active Substance: MELOXICAM
     Indication: NEUROPATHY PERIPHERAL
     Route: 048
  7. SERTRALINE [Concomitant]
     Active Substance: SERTRALINE HYDROCHLORIDE
     Indication: ANTIDEPRESSANT THERAPY
     Route: 048
  8. LISINOPRIL. [Suspect]
     Active Substance: LISINOPRIL
     Indication: BLOOD PRESSURE ABNORMAL
     Route: 048
  9. GLYBURIDE?METFORMIN [Concomitant]
     Indication: BLOOD GLUCOSE INCREASED
     Dosage: TWO TIMES A DAY
     Route: 048
  10. MELOXICAM. [Concomitant]
     Active Substance: MELOXICAM
     Indication: INFLAMMATION
     Route: 048
  11. BYDUREON BCISE [Suspect]
     Active Substance: EXENATIDE
     Indication: TYPE 2 DIABETES MELLITUS
     Route: 058
     Dates: start: 201807

REACTIONS (6)
  - Nervousness [Not Recovered/Not Resolved]
  - Neuropathy peripheral [Not Recovered/Not Resolved]
  - Wrong technique in device usage process [Unknown]
  - Visual impairment [Not Recovered/Not Resolved]
  - Circumstance or information capable of leading to medication error [Unknown]
  - Panic attack [Unknown]

NARRATIVE: CASE EVENT DATE: 20180727
